FAERS Safety Report 23210187 (Version 2)
Quarter: 2024Q1

REPORT INFORMATION
  Report Type: Spontaneous
  Country: PT (occurrence: PT)
  Receive Date: 20231121
  Receipt Date: 20240101
  Transmission Date: 20240410
  Serious: Yes (Hospitalization, Other)
  Sender: FDA-Public Use
  Company Number: PT-Accord-381776

PATIENT
  Age: 50 Year
  Sex: Female

DRUGS (28)
  1. CLONAZEPAM [Suspect]
     Active Substance: CLONAZEPAM
     Dosage: 2 MG HALF + HALF + 1
     Dates: start: 20220818
  2. QUETIAPINE [Suspect]
     Active Substance: QUETIAPINE
     Indication: Product used for unknown indication
     Dates: end: 20220707
  3. GABAPENTIN [Suspect]
     Active Substance: GABAPENTIN
     Indication: Product used for unknown indication
     Dates: start: 20220622
  4. PAROXETINE [Suspect]
     Active Substance: PAROXETINE
     Indication: Product used for unknown indication
     Dates: end: 20220622
  5. OLANZAPINE [Suspect]
     Active Substance: OLANZAPINE
     Indication: Product used for unknown indication
     Dates: end: 20220707
  6. METFORMIN [Concomitant]
     Active Substance: METFORMIN HYDROCHLORIDE
  7. EMPAGLIFLOZIN, METFORMIN [Concomitant]
     Dosage: 12.5 + 100 MG BID
  8. GLICLAZIDE [Concomitant]
     Active Substance: GLICLAZIDE
  9. ROSUVASTATIN [Concomitant]
     Active Substance: ROSUVASTATIN
  10. FENOFIBRATE [Concomitant]
     Active Substance: FENOFIBRATE
  11. LEVOTHYROXINE [Concomitant]
     Active Substance: LEVOTHYROXINE
  12. FLUTICASONE PROPIONATE\SALMETEROL XINAFOATE [Concomitant]
     Active Substance: FLUTICASONE PROPIONATE\SALMETEROL XINAFOATE
     Dosage: 250 MCG/DOSE + 50 MCG/DOSE BID
  13. PROPRANOLOL [Concomitant]
     Active Substance: PROPRANOLOL HYDROCHLORIDE
  14. PANTOPRAZOLE [Concomitant]
     Active Substance: PANTOPRAZOLE
  15. FOLIC ACID [Concomitant]
     Active Substance: FOLIC ACID
  16. CHOLECALCIFEROL [Concomitant]
     Active Substance: CHOLECALCIFEROL
     Dosage: 1 TABLET EVERY 28?DAYS
  17. CHLORPROMAZINE [Suspect]
     Active Substance: CHLORPROMAZINE
     Dates: start: 20220622
  18. RISPERIDONE [Suspect]
     Active Substance: RISPERIDONE
     Dates: start: 20220818
  19. OLANZAPINE [Suspect]
     Active Substance: OLANZAPINE
     Indication: Product used for unknown indication
     Dates: start: 20220721
  20. PAROXETINE [Suspect]
     Active Substance: PAROXETINE
     Indication: Product used for unknown indication
     Dosage: 20MG QD
     Dates: start: 20220707, end: 20220818
  21. PAROXETINE [Suspect]
     Active Substance: PAROXETINE
     Indication: Product used for unknown indication
     Dosage: 20MG TWICE A DAY
     Dates: start: 20220818, end: 20220921
  22. QUETIAPINE [Suspect]
     Active Substance: QUETIAPINE
     Indication: Product used for unknown indication
     Dates: end: 20220622
  23. QUETIAPINE [Suspect]
     Active Substance: QUETIAPINE
     Dates: start: 20220707, end: 20220818
  24. GABAPENTIN [Suspect]
     Active Substance: GABAPENTIN
  25. CLONAZEPAM [Suspect]
     Active Substance: CLONAZEPAM
     Dosage: 2MG ONCE A DAY
     Dates: start: 20220622
  26. PAROXETINE [Suspect]
     Active Substance: PAROXETINE
     Dosage: 20MG TID
     Dates: end: 20220707
  27. QUETIAPINE [Suspect]
     Active Substance: QUETIAPINE
  28. CLONAZEPAM [Suspect]
     Active Substance: CLONAZEPAM
     Dosage: 2 MG, TID

REACTIONS (21)
  - Somnolence [Unknown]
  - Incorrect dose administered [Unknown]
  - Wrong product administered [Unknown]
  - Panic attack [Unknown]
  - Suicidal ideation [Recovered/Resolved]
  - Anxiety [Unknown]
  - Agitation [Unknown]
  - Anhedonia [Recovering/Resolving]
  - Middle insomnia [Unknown]
  - Accidental overdose [Unknown]
  - Weight decreased [Unknown]
  - Fatigue [Unknown]
  - Affective disorder [Recovered/Resolved]
  - Hallucination, auditory [Recovered/Resolved]
  - Self-injurious ideation [Recovered/Resolved]
  - Nightmare [Unknown]
  - Depressed mood [Unknown]
  - Initial insomnia [Unknown]
  - Pseudohallucination [Recovered/Resolved]
  - Violence-related symptom [Recovered/Resolved]
  - Irritability [Unknown]

NARRATIVE: CASE EVENT DATE: 20220622
